FAERS Safety Report 4374484-1 (Version None)
Quarter: 2004Q2

REPORT INFORMATION
  Report Type: 
  Country: None (occurrence: None)
  Receive Date: 20040603
  Receipt Date: 20040514
  Transmission Date: 20050107
  Serious: Yes (Hospitalization)
  Sender: FDA-Public Use
  Company Number: DE_040513606

PATIENT
  Age: 47 Year
  Sex: Male
  Weight: 64 kg

DRUGS (6)
  1. HUMATROPE [Suspect]
     Indication: GROWTH HORMONE DEFICIENCY
     Dosage: 0.4 MG
     Dates: start: 20030920
  2. LEVOTHYROXINE SODIUM [Concomitant]
  3. MINIRIN (DESMOPRESSIN ACETATE) [Concomitant]
  4. TESTOVIRON (TESTOSTERONE ENANTATE) [Concomitant]
  5. IDEOS [Concomitant]
  6. HYDROCORTISON [Concomitant]

REACTIONS (2)
  - CARPAL TUNNEL SYNDROME [None]
  - PULMONARY SARCOIDOSIS [None]
